FAERS Safety Report 5596457-3 (Version None)
Quarter: 2007Q4

REPORT INFORMATION
  Report Type: 
  Country: None (occurrence: None)
  Receive Date: 20071218
  Receipt Date: 20070108
  Transmission Date: 20080405
  Serious: Yes (Hospitalization, Other)
  Sender: FDA-Public Use
  Company Number: 2006076280

PATIENT
  Age: 44 Year
  Sex: Female

DRUGS (2)
  1. BEXTRA [Suspect]
     Indication: PAIN
     Dosage: 20 MG (20 MG,1 IN 1 D),ORAL
     Route: 048
     Dates: start: 20041008
  2. VIOXX [Suspect]
     Dosage: (25 MG)
     Dates: start: 20040518, end: 20040930

REACTIONS (1)
  - PULMONARY EMBOLISM [None]
